FAERS Safety Report 7045835-4 (Version None)
Quarter: 2010Q4

REPORT INFORMATION
  Report Type: 
  Country: None (occurrence: None)
  Receive Date: 20101014
  Receipt Date: 20101008
  Transmission Date: 20110411
  Serious: Yes (Hospitalization)
  Sender: FDA-Public Use
  Company Number: JP-EISAI INC.-E2090-01347-SPO-JP

PATIENT
  Age: 29 Year
  Sex: Male

DRUGS (4)
  1. EXCEGRAN [Suspect]
     Indication: CONVULSION
     Route: 048
     Dates: start: 20100101, end: 20100101
  2. ALEVIATIN [Suspect]
     Indication: CONVULSION
     Route: 048
     Dates: start: 20100921, end: 20101005
  3. DEPAKENE [Suspect]
     Indication: CONVULSION
     Route: 048
     Dates: start: 20100101
  4. TEGRETOL [Suspect]
     Indication: CONVULSION
     Route: 048
     Dates: start: 20100101

REACTIONS (1)
  - RASH GENERALISED [None]
